FAERS Safety Report 8303809-7 (Version None)
Quarter: 2012Q2

REPORT INFORMATION
  Report Type: 
  Country: None (occurrence: None)
  Receive Date: 20120423
  Receipt Date: 20120410
  Transmission Date: 20120825
  Serious: Yes (Hospitalization)
  Sender: FDA-Public Use
  Company Number: PHHY2012KR009113

PATIENT
  Sex: Female
  Weight: 54 kg

DRUGS (1)
  1. EXJADE [Suspect]
     Indication: APLASTIC ANAEMIA
     Dosage: 1125 MG
     Route: 048
     Dates: start: 20070704

REACTIONS (3)
  - CONTUSION [None]
  - VASCULAR RUPTURE [None]
  - PLATELET COUNT DECREASED [None]
